FAERS Safety Report 17237453 (Version 2)
Quarter: 2020Q1

REPORT INFORMATION
  Report Type: Spontaneous
  Country: US (occurrence: US)
  Receive Date: 20200106
  Receipt Date: 20200214
  Transmission Date: 20200409
  Serious: Yes (Other)
  Sender: FDA-Public Use
  Company Number: US-JNJFOC-20191245196

PATIENT
  Sex: Male
  Weight: 65.83 kg

DRUGS (2)
  1. XARELTO [Suspect]
     Active Substance: RIVAROXABAN
     Indication: CEREBROVASCULAR ACCIDENT PROPHYLAXIS
  2. XARELTO [Suspect]
     Active Substance: RIVAROXABAN
     Indication: ATRIAL FIBRILLATION
     Route: 048
     Dates: start: 2011, end: 20191223

REACTIONS (6)
  - Contusion [Recovered/Resolved]
  - Impaired healing [Unknown]
  - Internal haemorrhage [Unknown]
  - Hernia [Unknown]
  - Cyst [Unknown]
  - Tooth extraction [Unknown]

NARRATIVE: CASE EVENT DATE: 2014
